FAERS Safety Report 15878134 (Version 1)
Quarter: 2019Q1

REPORT INFORMATION
  Report Type: Spontaneous
  Country: US (occurrence: US)
  Receive Date: 20190128
  Receipt Date: 20190128
  Transmission Date: 20190417
  Serious: No
  Sender: FDA-Public Use
  Company Number: US-PFIZER INC-2018377462

PATIENT
  Age: 59 Year
  Sex: Male
  Weight: 124.72 kg

DRUGS (1)
  1. LYRICA [Suspect]
     Active Substance: PREGABALIN
     Dosage: 150 MG, 4X/DAY

REACTIONS (2)
  - Drug hypersensitivity [Unknown]
  - Intentional product misuse [Unknown]
